FAERS Safety Report 4675787-3 (Version None)
Quarter: 2005Q2

REPORT INFORMATION
  Report Type: 
  Country: None (occurrence: None)
  Receive Date: 20050525
  Receipt Date: 20050513
  Transmission Date: 20051028
  Serious: Yes (Hospitalization)
  Sender: FDA-Public Use
  Company Number: MK200505-0201-1

PATIENT
  Sex: Male

DRUGS (5)
  1. TOFRANIL TAB [Suspect]
     Dosage: 15 MG QD, IN UTERO
     Dates: end: 20050504
  2. OLCADIL [Suspect]
     Dosage: IN UTERO
     Dates: end: 20050504
  3. AEROLIN [Concomitant]
  4. BUSCOPAN [Concomitant]
  5. DACTIL [Concomitant]

REACTIONS (6)
  - CONVULSION NEONATAL [None]
  - DRUG EXPOSURE DURING PREGNANCY [None]
  - NEONATAL APNOEIC ATTACK [None]
  - PREMATURE BABY [None]
  - PULMONARY MALFORMATION [None]
  - SMALL FOR DATES BABY [None]
